FAERS Safety Report 8983956 (Version 1)
Quarter: 2012Q4

REPORT INFORMATION
  Report Type: Spontaneous
  Country: GB (occurrence: None)
  Receive Date: 20121218
  Receipt Date: 20121218
  Transmission Date: 20130627
  Serious: Yes (Death)
  Sender: FDA-Public Use
  Company Number: None

PATIENT

DRUGS (1)
  1. CARBAGLU [Suspect]
     Indication: HYPERAMMONEMIA
     Route: 048

REACTIONS (1)
  - Multi-organ failure [None]
